FAERS Safety Report 7209782-7 (Version None)
Quarter: 2011Q1

REPORT INFORMATION
  Report Type: 
  Country: None (occurrence: None)
  Receive Date: 20110104
  Receipt Date: 20101227
  Transmission Date: 20110831
  Serious: Yes (Other)
  Sender: FDA-Public Use
  Company Number: US-RB-019953-10

PATIENT
  Age: 53 Year
  Sex: Female

DRUGS (1)
  1. SUBOXONE [Suspect]
     Indication: PRODUCT USED FOR UNKNOWN INDICATION
     Dosage: DOSING INFORMATION UNKNOWN
     Route: 065

REACTIONS (5)
  - INSOMNIA [None]
  - DRUG WITHDRAWAL SYNDROME [None]
  - DISTURBANCE IN ATTENTION [None]
  - SUICIDE ATTEMPT [None]
  - DIARRHOEA [None]
